FAERS Safety Report 20456589 (Version 1)
Quarter: 2022Q1

REPORT INFORMATION
  Report Type: Spontaneous
  Country: CH (occurrence: CH)
  Receive Date: 20220210
  Receipt Date: 20220210
  Transmission Date: 20220423
  Serious: Yes (Death, Other)
  Sender: FDA-Public Use
  Company Number: CH-CLOVIS ONCOLOGY-CLO-2022-000198

PATIENT

DRUGS (2)
  1. RUBRACA [Suspect]
     Active Substance: RUCAPARIB CAMSYLATE
     Indication: Pancreatic carcinoma
     Dosage: 600 MILLIGRAM 1-0-1
     Dates: start: 20211216, end: 20220120
  2. MORPHINE [Concomitant]
     Active Substance: MORPHINE
     Indication: Product used for unknown indication

REACTIONS (10)
  - Death [Fatal]
  - Malignant neoplasm progression [Unknown]
  - Ileus [Unknown]
  - Feeding disorder [Unknown]
  - Blood bilirubin increased [Unknown]
  - Gastrointestinal motility disorder [Unknown]
  - Constipation [Unknown]
  - Transaminases increased [Unknown]
  - Abdominal pain [Unknown]
  - Product use in unapproved indication [Unknown]

NARRATIVE: CASE EVENT DATE: 20220101
